FAERS Safety Report 10272086 (Version 3)
Quarter: 2014Q3

REPORT INFORMATION
  Report Type: Report from Study
  Country: BR (occurrence: BR)
  Receive Date: 20140702
  Receipt Date: 20140717
  Transmission Date: 20150326
  Serious: Yes (Hospitalization, Other)
  Sender: FDA-Public Use
  Company Number: BR-ROCHE-1348767

PATIENT
  Age: 67 Year
  Sex: Female
  Weight: 64 kg

DRUGS (15)
  1. FOLIC ACID. [Concomitant]
     Active Substance: FOLIC ACID
  2. MABTHERA [Suspect]
     Active Substance: RITUXIMAB
     Dosage: THE MOST RECENT DOSE WAS ON 07/FEB/2014.
     Route: 065
     Dates: start: 20110126
  3. MABTHERA [Suspect]
     Active Substance: RITUXIMAB
     Route: 065
     Dates: start: 20110802
  4. MABTHERA [Suspect]
     Active Substance: RITUXIMAB
     Route: 065
     Dates: start: 20120810
  5. MABTHERA [Suspect]
     Active Substance: RITUXIMAB
     Indication: RHEUMATOID ARTHRITIS
     Dosage: THE MOST RECENT DOSE WAS ON 07/FEB/2014.
     Route: 065
     Dates: start: 20110112
  6. MABTHERA [Suspect]
     Active Substance: RITUXIMAB
     Route: 065
     Dates: start: 20120130
  7. MABTHERA [Suspect]
     Active Substance: RITUXIMAB
     Route: 065
     Dates: start: 20120727
  8. ARADOIS [Concomitant]
     Active Substance: LOSARTAN POTASSIUM
  9. MABTHERA [Suspect]
     Active Substance: RITUXIMAB
     Route: 065
     Dates: start: 20130415
  10. MABTHERA [Suspect]
     Active Substance: RITUXIMAB
     Route: 065
     Dates: start: 20130429
  11. MABTHERA [Suspect]
     Active Substance: RITUXIMAB
     Route: 065
     Dates: start: 20120116
  12. MABTHERA [Suspect]
     Active Substance: RITUXIMAB
     Route: 065
     Dates: start: 20140124
  13. METHOTREXATE [Concomitant]
     Active Substance: METHOTREXATE
  14. MABTHERA [Suspect]
     Active Substance: RITUXIMAB
     Route: 065
     Dates: start: 20110719
  15. MABTHERA [Suspect]
     Active Substance: RITUXIMAB
     Route: 065
     Dates: start: 20140207

REACTIONS (2)
  - Breast cancer recurrent [Not Recovered/Not Resolved]
  - Encephalitis viral [Recovering/Resolving]

NARRATIVE: CASE EVENT DATE: 20140208
